FAERS Safety Report 13643126 (Version 3)
Quarter: 2017Q3

REPORT INFORMATION
  Report Type: Spontaneous
  Country: FR (occurrence: FR)
  Receive Date: 20170612
  Receipt Date: 20170712
  Transmission Date: 20171127
  Serious: Yes (Hospitalization)
  Sender: FDA-Public Use
  Company Number: FR-TEVA-775764ROM

PATIENT
  Age: 67 Year
  Sex: Male

DRUGS (3)
  1. MANTADIX 100 MG [Suspect]
     Active Substance: AMANTADINE HYDROCHLORIDE
     Indication: PARKINSON^S DISEASE
     Dosage: 200 MILLIGRAM DAILY;
     Route: 048
     Dates: start: 20170425, end: 20170502
  2. PYOSTACINE 500 MG [Suspect]
     Active Substance: PRISTINAMYCIN
     Indication: CHALAZION
     Dosage: 1 GRAM DAILY;
     Route: 048
     Dates: start: 20170502, end: 20170504
  3. AZILECT [Suspect]
     Active Substance: RASAGILINE MESYLATE
     Indication: PARKINSON^S DISEASE
     Dosage: 1 MILLIGRAM DAILY;
     Route: 048
     Dates: start: 20170425, end: 20170502

REACTIONS (3)
  - Toxic skin eruption [Recovered/Resolved]
  - Drug eruption [Recovered/Resolved]
  - Drug reaction with eosinophilia and systemic symptoms [Recovered/Resolved]

NARRATIVE: CASE EVENT DATE: 20170504
